FAERS Safety Report 24287426 (Version 1)
Quarter: 2024Q3

REPORT INFORMATION
  Report Type: Report from Study
  Country: ES (occurrence: None)
  Receive Date: 20240905
  Receipt Date: 20240905
  Transmission Date: 20241016
  Serious: Yes (Other)
  Sender: ASTRAZENECA
  Company Number: 2024A196085

PATIENT
  Age: 40 Year
  Sex: Female

DRUGS (6)
  1. OMEPRAZOLE [Suspect]
     Active Substance: OMEPRAZOLE
     Route: 048
  2. SIMVASTATIN [Suspect]
     Active Substance: SIMVASTATIN
  3. BETAHISTINE HYDROCHLORIDE [Suspect]
     Active Substance: BETAHISTINE HYDROCHLORIDE
  4. IBUPROFEN [Suspect]
     Active Substance: IBUPROFEN
  5. HYDROXYCHLOROQUINE [Suspect]
     Active Substance: HYDROXYCHLOROQUINE
  6. ASPIRIN [Suspect]
     Active Substance: ASPIRIN
     Dosage: LOW DOSE

REACTIONS (2)
  - Exposure during pregnancy [Unknown]
  - Abortion spontaneous [Unknown]
